FAERS Safety Report 21609744 (Version 1)
Quarter: 2022Q4

REPORT INFORMATION
  Report Type: Spontaneous
  Country: JP (occurrence: JP)
  Receive Date: 20221117
  Receipt Date: 20221117
  Transmission Date: 20230113
  Serious: Yes (Other)
  Sender: FDA-Public Use
  Company Number: JP-SANOFI-2018SA307500AA

PATIENT
  Age: 13 Month
  Sex: Male
  Weight: 10.9 kg

DRUGS (7)
  1. SABRIL [Suspect]
     Active Substance: VIGABATRIN
     Indication: Infantile spasms
     Dosage: DAILY DOSE: 75 MG/KG, BID (ACTUAL DOSE: 750 MG/DAY)
     Route: 048
     Dates: start: 20180919, end: 20180925
  2. SABRIL [Suspect]
     Active Substance: VIGABATRIN
     Dosage: DAILY DOSE: 50 MG/KG, BID (ACTUAL DOSE: 500 MG/DAY)
     Route: 048
     Dates: start: 20180529, end: 20180531
  3. SABRIL [Suspect]
     Active Substance: VIGABATRIN
     Dosage: DAILY DOSE: 75 MG/KG, BID (ACTUAL DOSE: 750 MG/DAY)
     Route: 048
     Dates: start: 20180601, end: 20180604
  4. SABRIL [Suspect]
     Active Substance: VIGABATRIN
     Dosage: DAILY DOSE: 100 MG/KG, BID (ACTUAL DOSE: 1000 MG/DAY)
     Route: 048
     Dates: start: 20180605, end: 20180612
  5. SABRIL [Suspect]
     Active Substance: VIGABATRIN
     Dosage: DAILY DOSE: 125 MG/KG, BID (ACTUAL DOSE: 1250 MG/DAY)
     Route: 048
     Dates: start: 20180613, end: 20180619
  6. SABRIL [Suspect]
     Active Substance: VIGABATRIN
     Dosage: DAILY DOSE: 150 MG/KG, BID (ACTUAL DOSE: 1500 MG/DAY)
     Route: 048
     Dates: start: 20180620, end: 20180918
  7. VALPROATE SODIUM [Concomitant]
     Active Substance: VALPROATE SODIUM
     Indication: Infantile spasms
     Dosage: DAILY DOSE: 250 MG
     Route: 048
     Dates: start: 20180514

REACTIONS (2)
  - Toxic encephalopathy [Recovered/Resolved]
  - Therapeutic product effect incomplete [Unknown]

NARRATIVE: CASE EVENT DATE: 20180920
